FAERS Safety Report 9422986 (Version 1)
Quarter: 2013Q3

REPORT INFORMATION
  Report Type: Spontaneous
  Country: BR (occurrence: BR)
  Receive Date: 20130726
  Receipt Date: 20130726
  Transmission Date: 20140515
  Serious: Yes (Hospitalization, Other)
  Sender: FDA-Public Use
  Company Number: BR-009507513-1307BRA013351

PATIENT
  Age: 35 Year
  Sex: Female
  Weight: 70 kg

DRUGS (2)
  1. NUVARING [Suspect]
     Indication: CONTRACEPTION
     Dosage: UNK
     Route: 067
     Dates: start: 2003
  2. NUVARING [Suspect]
     Dosage: UNK
     Route: 067

REACTIONS (7)
  - Spinal operation [Unknown]
  - Pre-eclampsia [Recovered/Resolved]
  - Cervical cord compression [Recovered/Resolved]
  - Premature delivery [Recovered/Resolved]
  - Maternal exposure before pregnancy [Unknown]
  - Medical device complication [Unknown]
  - Vulvovaginal discomfort [Recovered/Resolved]
